FAERS Safety Report 7524385-2 (Version None)
Quarter: 2011Q2

REPORT INFORMATION
  Report Type: 
  Country: None (occurrence: None)
  Receive Date: 20110606
  Receipt Date: 20100208
  Transmission Date: 20111010
  Serious: No
  Sender: FDA-Public Use
  Company Number: 2010BI004560

PATIENT
  Age: 55 Year
  Sex: Male

DRUGS (1)
  1. TYSABRI [Suspect]
     Indication: MULTIPLE SCLEROSIS
     Route: 042
     Dates: start: 20081002

REACTIONS (10)
  - GAIT DISTURBANCE [None]
  - NASOPHARYNGITIS [None]
  - ABASIA [None]
  - BALANCE DISORDER [None]
  - DRUG INEFFECTIVE [None]
  - MOBILITY DECREASED [None]
  - LOSS OF CONTROL OF LEGS [None]
  - PSORIASIS [None]
  - DEPRESSION [None]
  - FALL [None]
